FAERS Safety Report 17725495 (Version 1)
Quarter: 2020Q2

REPORT INFORMATION
  Report Type: Report from Study
  Country: FR (occurrence: FR)
  Receive Date: 20200429
  Receipt Date: 20200429
  Transmission Date: 20200714
  Serious: Yes (Other)
  Sender: FDA-Public Use
  Company Number: FR-MYLANLABS-2020M1041881

PATIENT
  Age: 58 Year
  Sex: Male

DRUGS (10)
  1. FLUOROURACIL. [Suspect]
     Active Substance: FLUOROURACIL
     Indication: COLORECTAL CANCER METASTATIC
     Dosage: UNK UNK, CYCLE
     Route: 042
     Dates: start: 20151203, end: 20151203
  2. IRINOTECAN [Suspect]
     Active Substance: IRINOTECAN
     Dosage: 360 MILLIGRAM, CYCLE, 360 MG, QCY
     Route: 042
     Dates: start: 20160204
  3. FLUOROURACIL. [Suspect]
     Active Substance: FLUOROURACIL
     Dosage: 4800 MILLIGRAM, CYCLE, 4800 MG, QCY
     Route: 042
     Dates: start: 20160204
  4. CALCIUM FOLINATE [Suspect]
     Active Substance: LEUCOVORIN CALCIUM
     Dosage: 480 MILLIGRAM, CYCLE, 480 MG, QCY
     Route: 042
     Dates: start: 20151203
  5. AFLIBERCEPT [Suspect]
     Active Substance: AFLIBERCEPT
     Indication: COLORECTAL CANCER METASTATIC
     Dosage: UNK UNK, CYCLE, QCY
     Route: 042
     Dates: start: 20151203, end: 20151203
  6. CALCIUM FOLINATE [Suspect]
     Active Substance: LEUCOVORIN CALCIUM
     Indication: COLORECTAL CANCER METASTATIC
     Dosage: UNK UNK, CYCLE, UNK UNK, QCY
     Route: 042
     Dates: start: 20151203, end: 20151203
  7. IRINOTECAN [Suspect]
     Active Substance: IRINOTECAN
     Indication: COLORECTAL CANCER METASTATIC
     Dosage: UNK, CYCLE, UNK UNK, QCY
     Route: 042
     Dates: start: 20151203, end: 20151203
  8. AFLIBERCEPT [Suspect]
     Active Substance: AFLIBERCEPT
     Dosage: 480 MILLIGRAM, CYCLE, 480 MG, QCY
     Route: 042
     Dates: start: 20160204, end: 20160204
  9. FLUOROURACIL. [Suspect]
     Active Substance: FLUOROURACIL
     Dosage: UNK UNK, CYCLE
     Route: 040
     Dates: start: 20151203, end: 20151203
  10. FLUOROURACIL. [Suspect]
     Active Substance: FLUOROURACIL
     Dosage: 800 MILLIGRAM, CYCLE, 800 MG, QCY
     Route: 040
     Dates: start: 20160204, end: 20160204

REACTIONS (1)
  - Hypertension [Recovered/Resolved]

NARRATIVE: CASE EVENT DATE: 20160219
